FAERS Safety Report 5381321-5 (Version None)
Quarter: 2007Q2

REPORT INFORMATION
  Report Type: 
  Country: None (occurrence: None)
  Receive Date: 20070629
  Receipt Date: 20061111
  Transmission Date: 20071010
  Serious: Yes (Other)
  Sender: FDA-Public Use
  Company Number: 2006141986

PATIENT
  Age: 42 Year
  Sex: Female
  Weight: 90.7194 kg

DRUGS (2)
  1. VISTARIL [Suspect]
     Indication: SLEEP DISORDER
     Dosage: 75 MG (75 MG, 1 IN 1 D), ORAL
     Route: 048
     Dates: start: 20061019, end: 20061110
  2. CYMBALTA [Concomitant]

REACTIONS (1)
  - HALLUCINATION, VISUAL [None]
